FAERS Safety Report 16022819 (Version 4)
Quarter: 2019Q2

REPORT INFORMATION
  Report Type: Spontaneous
  Country: US (occurrence: US)
  Receive Date: 20190301
  Receipt Date: 20190620
  Transmission Date: 20190711
  Serious: No
  Sender: FDA-Public Use
  Company Number: US-PFIZER INC-2019090157

PATIENT
  Age: 27 Year
  Sex: Female

DRUGS (1)
  1. BOSULIF [Suspect]
     Active Substance: BOSUTINIB MONOHYDRATE
     Dosage: 400 MG, DAILY
     Route: 048
     Dates: start: 20190218

REACTIONS (5)
  - Weight increased [Unknown]
  - Rash papular [Unknown]
  - Rash pruritic [Unknown]
  - Abdominal distension [Unknown]
  - Rash [Unknown]

NARRATIVE: CASE EVENT DATE: 20190214
